FAERS Safety Report 5376343-4 (Version None)
Quarter: 2007Q3

REPORT INFORMATION
  Report Type: 
  Country: None (occurrence: None)
  Receive Date: 20070702
  Receipt Date: 20070620
  Transmission Date: 20080115
  Serious: Yes (Other)
  Sender: FDA-Public Use
  Company Number: GB-PFIZER INC-2006116631

PATIENT
  Sex: Male
  Weight: 83.2 kg

DRUGS (5)
  1. SU-011,248 [Suspect]
     Indication: RENAL CELL CARCINOMA STAGE UNSPECIFIED
     Route: 048
     Dates: start: 20060616, end: 20070208
  2. PAMIDRONATE DISODIUM [Concomitant]
     Route: 042
  3. WARFARIN SODIUM [Concomitant]
     Route: 048
     Dates: start: 20060714
  4. RAMIPRIL [Concomitant]
     Route: 048
     Dates: start: 20060714
  5. PARACETAMOL [Concomitant]
     Route: 048
     Dates: start: 20060630

REACTIONS (2)
  - OPTIC NEUROPATHY [None]
  - VISUAL DISTURBANCE [None]
